FAERS Safety Report 9293828 (Version 2)
Quarter: 2013Q4

REPORT INFORMATION
  Report Type: Spontaneous
  Country: GB (occurrence: GB)
  Receive Date: 20130516
  Receipt Date: 20131028
  Transmission Date: 20140711
  Serious: Yes (Hospitalization)
  Sender: FDA-Public Use
  Company Number: PHHY2013GB047747

PATIENT
  Age: 72 Year
  Sex: Female

DRUGS (4)
  1. METHOTREXATE [Suspect]
     Indication: RHEUMATOID ARTHRITIS
     Dosage: 7.5 MG, QW
     Route: 048
     Dates: end: 201305
  2. SIMVASTATIN [Concomitant]
  3. SALAZOPYRIN [Concomitant]
  4. CO-CODAMOL [Concomitant]

REACTIONS (2)
  - Local swelling [Unknown]
  - Lymphadenopathy [Unknown]
